FAERS Safety Report 6250727-4 (Version None)
Quarter: 2009Q2

REPORT INFORMATION
  Report Type: 
  Country: None (occurrence: None)
  Receive Date: 20090630
  Receipt Date: 20080807
  Transmission Date: 20091009
  Serious: No
  Sender: FDA-Public Use
  Company Number: US-ABBOTT-08P-163-0469471-00

PATIENT
  Sex: Female
  Weight: 124.1 kg

DRUGS (23)
  1. ZEMPLAR [Suspect]
     Indication: RENAL DISORDER
     Route: 048
     Dates: start: 20050101, end: 20050901
  2. ZEMPLAR [Suspect]
     Indication: HYPERPARATHYROIDISM
     Dates: start: 20060301
  3. ZEMPLAR [Suspect]
     Dates: start: 20080301
  4. TOLTERODINE TARTRATE [Concomitant]
     Indication: BLADDER DISORDER
     Route: 048
  5. ALLOPURINOL [Concomitant]
     Indication: BLADDER DISORDER
     Route: 048
  6. OXYCODONE [Concomitant]
     Indication: PAIN
     Dosage: 3-4 TIMES A DAY AS NEEDED
     Route: 048
  7. LORTAB [Concomitant]
     Indication: PAIN
     Route: 048
  8. PREGABALIN [Concomitant]
     Indication: PAIN
     Dosage: AS NEEDED
     Route: 048
  9. COLCHICINE [Concomitant]
     Indication: ILL-DEFINED DISORDER
  10. PREDNISONE TAB [Concomitant]
     Indication: RHEUMATOID ARTHRITIS
     Route: 048
  11. FOLIC ACID [Concomitant]
     Indication: DRUG USE FOR UNKNOWN INDICATION
     Route: 048
  12. CYANOCOBALAMIN [Concomitant]
     Indication: DRUG USE FOR UNKNOWN INDICATION
     Route: 048
  13. TORSEMIDE [Concomitant]
     Indication: DIURETIC THERAPY
     Dosage: AS NEEDED
     Route: 048
  14. POTASSIUM CHLORIDE [Concomitant]
     Indication: MINERAL SUPPLEMENTATION
     Route: 048
  15. ACETYLSALICYLIC ACID [Concomitant]
     Indication: DRUG USE FOR UNKNOWN INDICATION
     Route: 048
  16. OS-CAL [Concomitant]
     Indication: MINERAL SUPPLEMENTATION
     Route: 048
  17. CIMICIFUGA RACEMOSA ROOT [Concomitant]
     Indication: HOT FLUSH
     Route: 048
  18. IRON [Concomitant]
     Indication: MINERAL SUPPLEMENTATION
     Route: 048
  19. CETIRIZINE HYDROCHLORIDE [Concomitant]
     Indication: HYPERSENSITIVITY
     Route: 048
  20. CETIRIZINE HYDROCHLORIDE [Concomitant]
     Indication: SEASONAL ALLERGY
  21. DOCUSATE SODIUM [Concomitant]
     Indication: CONSTIPATION PROPHYLAXIS
     Route: 048
  22. MULTI-VITAMIN [Concomitant]
     Indication: VITAMIN SUPPLEMENTATION
     Route: 048
  23. ARANESP/DARBEPOETIN ALPHA [Concomitant]
     Indication: BLOOD DISORDER
     Route: 030

REACTIONS (3)
  - OSTEOARTHRITIS [None]
  - PAIN [None]
  - RHEUMATOID ARTHRITIS [None]
